FAERS Safety Report 5277834-7 (Version None)
Quarter: 2007Q1

REPORT INFORMATION
  Report Type: 
  Country: None (occurrence: None)
  Receive Date: 20070321
  Receipt Date: 20070316
  Transmission Date: 20070707
  Serious: Yes (Life-Threatening, Hospitalization)
  Sender: FDA-Public Use
  Company Number: 2007SP000966

PATIENT
  Age: 26 Year
  Sex: Female
  Weight: 68.0396 kg

DRUGS (3)
  1. LUNESTA [Suspect]
     Indication: INSOMNIA
     Dosage: 2 MG;HS;ORAL
     Route: 048
     Dates: start: 20070201
  2. KADIAN [Suspect]
     Indication: NECK PAIN
     Dosage: 80 MG; BID; ORAL
     Route: 048
     Dates: start: 20070221, end: 20070223
  3. NORCO [Concomitant]

REACTIONS (1)
  - RESPIRATORY ARREST [None]
